FAERS Safety Report 7783718-2 (Version None)
Quarter: 2011Q3

REPORT INFORMATION
  Report Type: 
  Country: None (occurrence: None)
  Receive Date: 20110928
  Receipt Date: 20110923
  Transmission Date: 20111222
  Serious: Yes (Hospitalization)
  Sender: FDA-Public Use
  Company Number: DE-ELI_LILLY_AND_COMPANY-DE200911003725

PATIENT
  Sex: Female
  Weight: 120 kg

DRUGS (20)
  1. HEPARIN [Concomitant]
     Dosage: 5000 IU, TID
  2. CEFORAL [Concomitant]
     Dosage: UNK
     Dates: start: 20091211
  3. LASIX [Concomitant]
     Dosage: 250MG/50ML AT 4ML/HOUR
  4. AMITRIPTYLINE HCL [Concomitant]
  5. PREDNISONE [Concomitant]
     Dosage: 2.5 MG, QD
  6. LORAZEPAM [Concomitant]
     Dosage: 2 MG, QD
  7. PEMETREXED [Suspect]
     Indication: NON-SMALL CELL LUNG CANCER
     Dosage: 500 MG/M2, DAY 1 EVERY 21 DAYS
     Route: 042
     Dates: start: 20090602, end: 20090810
  8. PEMETREXED [Suspect]
     Dosage: 500 MG/M2, DAY 1 EVERY 21 DAYS
     Route: 042
     Dates: start: 20090902, end: 20091104
  9. CETUXIMAB [Suspect]
     Indication: NON-SMALL CELL LUNG CANCER
     Dosage: 400 MG/M2, DAY 1 CYCLE 1
     Route: 042
     Dates: start: 20090602, end: 20090602
  10. KALINOR RETARD [Concomitant]
     Dosage: UNK, PRN
  11. SODIUM CHLORIDE INJ [Concomitant]
     Dosage: UNK, TID
  12. CETUXIMAB [Suspect]
     Dosage: 250 MG/M2, WEEKLY
     Route: 042
     Dates: start: 20090902, end: 20091104
  13. ASPIRIN [Concomitant]
  14. ALT-INSULIN [Concomitant]
     Dosage: UNK, PRN
  15. PALLADONE [Concomitant]
     Dosage: 0.4 UNK, UNK
  16. CETUXIMAB [Suspect]
     Dosage: 250 MG/M2, WEEKLY (1/W)
     Route: 042
     Dates: end: 20090810
  17. CISPLATIN [Suspect]
     Indication: NON-SMALL CELL LUNG CANCER
     Dosage: 75 MG/M2, ON DAY ONE EVERY 21 DAYS
     Route: 042
     Dates: start: 20090602, end: 20090810
  18. PANTOPRAZOLE [Concomitant]
  19. NOVALGIN [Concomitant]
     Dosage: 1 G, TID
  20. LYRICA [Concomitant]

REACTIONS (4)
  - RENAL FAILURE [None]
  - STASIS DERMATITIS [None]
  - ANAEMIA [None]
  - OEDEMA PERIPHERAL [None]
